FAERS Safety Report 5100600-X (Version None)
Quarter: 2006Q3

REPORT INFORMATION
  Report Type: 
  Country: None (occurrence: None)
  Receive Date: 20060907
  Receipt Date: 20060907
  Transmission Date: 20061208
  Serious: Yes (Hospitalization)
  Sender: FDA-Public Use
  Company Number: None

PATIENT
  Age: 47 Year
  Sex: Female

DRUGS (5)
  1. ERTAPENEM 1 GRAM MERCK [Suspect]
     Indication: OSTEOMYELITIS
     Dosage: 1 GRAM  DAILY  IV
     Route: 042
     Dates: start: 20060503, end: 20060529
  2. VANCOMYCIN [Suspect]
     Indication: OSTEOMYELITIS
     Dosage: IV
     Route: 042
     Dates: start: 20060503, end: 20060529
  3. AMLODIPINE [Concomitant]
  4. HYDROCHLOROTHIAZIDE [Concomitant]
  5. FENTANYL [Concomitant]

REACTIONS (3)
  - DISEASE RECURRENCE [None]
  - OSTEOMYELITIS [None]
  - TOXIC EPIDERMAL NECROLYSIS [None]
